FAERS Safety Report 7525327-6 (Version None)
Quarter: 2011Q2

REPORT INFORMATION
  Report Type: 
  Country: None (occurrence: None)
  Receive Date: 20110526
  Receipt Date: 20110517
  Transmission Date: 20111010
  Serious: Yes (Death, Hospitalization)
  Sender: FDA-Public Use
  Company Number: 1000021117

PATIENT
  Age: 80 Year
  Sex: Male
  Weight: 61 kg

DRUGS (6)
  1. ROFLUMILAST (ROFLUMILAST)(500 MICROGRAM, TABLETS) [Suspect]
     Indication: CHRONIC OBSTRUCTIVE PULMONARY DISEASE
     Dosage: 500 MCG (500 MCG, 1 IN 1 D), ORAL
     Route: 048
  2. BELOC-ZOK MITE (METROPROLOL SUCCINATE) [Concomitant]
  3. SPIRIVA DA (TIOTROPIUM BROMIDE) [Concomitant]
  4. FOSTER DA (BECLOMETHASONE DIPROPIONATE) [Concomitant]
  5. TORSEMIDE [Concomitant]
  6. MIFLONID DA (BUDESONIDE) [Concomitant]

REACTIONS (1)
  - LACTIC ACIDOSIS [None]
